FAERS Safety Report 24272297 (Version 3)
Quarter: 2025Q4

REPORT INFORMATION
  Report Type: Report from Study
  Country: US (occurrence: US)
  Receive Date: 20240902
  Receipt Date: 20251016
  Transmission Date: 20260118
  Serious: Yes (Hospitalization, Other)
  Sender: EMD SERONO INC
  Company Number: US-Merck Healthcare KGaA-2024043035

PATIENT
  Age: 69 Year
  Sex: Female
  Weight: 58 kg

DRUGS (1)
  1. MAVENCLAD [Suspect]
     Active Substance: CLADRIBINE
     Indication: Multiple sclerosis
     Dosage: YEAR ONE MONTH ONE THERAPY: SHE TOOK DAY 2 TO DAY 5 FROM 07-AUG-2024 TO 10-AUG-2024
     Dates: start: 20240804, end: 20240810

REACTIONS (5)
  - Dizziness [Recovering/Resolving]
  - Presyncope [Unknown]
  - Palpitations [Unknown]
  - Sensory disturbance [Unknown]
  - Feeling abnormal [Unknown]

NARRATIVE: CASE EVENT DATE: 20240804
